FAERS Safety Report 5426911-6 (Version None)
Quarter: 2007Q3

REPORT INFORMATION
  Report Type: 
  Country: None (occurrence: None)
  Receive Date: 20070827
  Receipt Date: 20070815
  Transmission Date: 20080115
  Serious: Yes (Other)
  Sender: FDA-Public Use
  Company Number: US-PFIZER INC-2007069831

PATIENT
  Sex: Female

DRUGS (8)
  1. LYRICA [Suspect]
     Indication: PAIN
  2. PREVACID [Concomitant]
     Indication: GASTROOESOPHAGEAL REFLUX DISEASE
  3. SYNTHROID [Concomitant]
  4. ALLOPURINOL [Concomitant]
  5. NOVOLOG MIX 70/30 [Concomitant]
     Indication: DIABETES MELLITUS
  6. SOTALOL HYDROCHLORIDE [Concomitant]
     Indication: ATRIAL FIBRILLATION
  7. SOTALOL HYDROCHLORIDE [Concomitant]
     Indication: CARDIAC FAILURE CONGESTIVE
  8. DRUG, UNSPECIFIED [Concomitant]

REACTIONS (3)
  - ABASIA [None]
  - DIZZINESS [None]
  - DYSSTASIA [None]
